FAERS Safety Report 6408485-6 (Version None)
Quarter: 2009Q4

REPORT INFORMATION
  Report Type: 
  Country: None (occurrence: None)
  Receive Date: 20091021
  Receipt Date: 20091009
  Transmission Date: 20100525
  Serious: Yes (Hospitalization)
  Sender: FDA-Public Use
  Company Number: JP-PFIZER INC-2009270461

PATIENT
  Age: 17 Year

DRUGS (5)
  1. BANAN [Suspect]
     Indication: PHARYNGITIS
     Dosage: UNK
     Route: 048
     Dates: start: 20090806, end: 20090810
  2. BANAN [Suspect]
     Indication: OTITIS EXTERNA
  3. VOLTAREN [Suspect]
     Indication: PHARYNGITIS
     Dosage: UNK
     Route: 048
     Dates: start: 20090806, end: 20090810
  4. GASTER [Concomitant]
     Indication: PHARYNGITIS
     Dosage: UNK
     Route: 048
     Dates: start: 20090806, end: 20090810
  5. NAUZELIN [Concomitant]
     Indication: PHARYNGITIS
     Dosage: UNK
     Route: 048
     Dates: start: 20090806, end: 20090810

REACTIONS (1)
  - DRUG ERUPTION [None]
